FAERS Safety Report 17505714 (Version 1)
Quarter: 2020Q1

REPORT INFORMATION
  Report Type: Spontaneous
  Country: US (occurrence: US)
  Receive Date: 20200305
  Receipt Date: 20200305
  Transmission Date: 20200409
  Serious: No
  Sender: FDA-Public Use
  Company Number: US-ETHYPHARM-202000255

PATIENT
  Sex: Male

DRUGS (1)
  1. BUPRENORPHINE. [Suspect]
     Active Substance: BUPRENORPHINE
     Indication: PAIN
     Dosage: TAPERED DOWN TO 1/6 OF A TABLET
     Route: 060

REACTIONS (4)
  - Muscle spasms [Unknown]
  - Off label use [Unknown]
  - Drug withdrawal syndrome [Unknown]
  - Drug ineffective for unapproved indication [Unknown]
